FAERS Safety Report 25548052 (Version 1)
Quarter: 2025Q3

REPORT INFORMATION
  Report Type: Spontaneous
  Country: CN (occurrence: CN)
  Receive Date: 20250714
  Receipt Date: 20250714
  Transmission Date: 20251020
  Serious: Yes (Other)
  Sender: SANOFI AVENTIS
  Company Number: CN-SA-2025SA191964

PATIENT
  Age: 20 Year
  Sex: Male
  Weight: 81.6 kg

DRUGS (7)
  1. THYMOGLOBULINE [Suspect]
     Active Substance: LAPINE T-LYMPHOCYTE IMMUNE GLOBULIN
     Indication: Adjuvant therapy
     Dosage: 225 MG, QD
     Route: 041
     Dates: start: 20250530, end: 20250530
  2. THYMOGLOBULINE [Suspect]
     Active Substance: LAPINE T-LYMPHOCYTE IMMUNE GLOBULIN
     Dosage: 225 MG, QD ADJUSTED TO 30 ML/L
     Route: 041
     Dates: start: 20250531, end: 20250531
  3. THYMOGLOBULINE [Suspect]
     Active Substance: LAPINE T-LYMPHOCYTE IMMUNE GLOBULIN
     Dosage: 225 MG, QD ADJUSTED TO 25 ML/L
     Route: 041
     Dates: start: 20250531, end: 20250531
  4. THYMOGLOBULINE [Suspect]
     Active Substance: LAPINE T-LYMPHOCYTE IMMUNE GLOBULIN
     Dosage: 225 MG, QD ADJUSTED TO 20ML/L
     Route: 041
     Dates: start: 20250601, end: 20250602
  5. THYMOGLOBULINE [Suspect]
     Active Substance: LAPINE T-LYMPHOCYTE IMMUNE GLOBULIN
     Dosage: 225 MG, QD ADJUSTED TO 20ML/L
     Route: 041
     Dates: start: 20250602, end: 20250602
  6. CALCIUM GLUCONATE [Concomitant]
     Active Substance: CALCIUM GLUCONATE
     Indication: Acute myeloid leukaemia
     Dosage: 30 ML, QD
     Route: 041
     Dates: start: 20250530, end: 20250602
  7. POTASSIUM CHLORIDE [Concomitant]
     Active Substance: POTASSIUM CHLORIDE
     Indication: Acute myeloid leukaemia
     Dosage: 20 ML, QD
     Route: 041
     Dates: start: 20250530, end: 20250602

REACTIONS (6)
  - Rash erythematous [Recovered/Resolved]
  - Hyperpyrexia [Recovering/Resolving]
  - Papule [Recovering/Resolving]
  - Condition aggravated [Recovering/Resolving]
  - Head discomfort [Recovering/Resolving]
  - Pruritus [Recovering/Resolving]

NARRATIVE: CASE EVENT DATE: 20250530
